FAERS Safety Report 9301727 (Version 1)
Quarter: 2013Q2

REPORT INFORMATION
  Report Type: Spontaneous
  Country: US (occurrence: US)
  Receive Date: 20130521
  Receipt Date: 20130521
  Transmission Date: 20140414
  Serious: No
  Sender: FDA-Public Use
  Company Number: US-009507513-1305USA011421

PATIENT
  Age: 53 Year
  Sex: Female

DRUGS (24)
  1. JANUVIA [Suspect]
     Indication: DIABETES MELLITUS
     Dosage: 100 MG, QD, HALF AN HOUR BEFORE LUNCH
     Route: 048
     Dates: start: 20130513, end: 20130514
  2. NOXAFIL [Concomitant]
  3. RESTASIS [Concomitant]
  4. CARDIZEM [Concomitant]
  5. MEPRON (ATOVAQUONE) [Concomitant]
  6. LUMIGAN [Concomitant]
  7. DURAGESIC [Concomitant]
  8. PREDNISONE [Concomitant]
  9. LEVOTHYROXINE SODIUM [Concomitant]
  10. RITALIN [Concomitant]
  11. AMOXICILLIN [Concomitant]
  12. ACIVIR [Concomitant]
  13. KETOCONAZOLE [Concomitant]
  14. OMEPRAZOLE [Concomitant]
  15. TORSEMIDE [Concomitant]
  16. POTASSIUM CHLORIDE [Concomitant]
  17. METOPROLOL TARTRATE [Concomitant]
  18. DOCUSATE SODIUM [Concomitant]
     Dosage: UNK, PRN
  19. OMEGA-3 MARINE TRIGLYCERIDES [Concomitant]
  20. CHOLECALCIFEROL [Concomitant]
  21. PROBIOTICA [Concomitant]
  22. LACTAID [Concomitant]
  23. OXYCODONE [Concomitant]
  24. GABAPENTIN [Suspect]

REACTIONS (1)
  - Feeling jittery [Recovering/Resolving]
